FAERS Safety Report 10220517 (Version 1)
Quarter: 2014Q2

REPORT INFORMATION
  Report Type: Spontaneous
  Country: CM (occurrence: CM)
  Receive Date: 20140606
  Receipt Date: 20140606
  Transmission Date: 20141212
  Serious: Yes (Life-Threatening, Hospitalization, Other)
  Sender: FDA-Public Use
  Company Number: CM-MERCK-1406FRA002432

PATIENT
  Age: 27 Year
  Sex: Male
  Weight: 82 kg

DRUGS (2)
  1. MECTIZAN [Suspect]
     Dosage: 4 DF, ONCE
     Route: 048
     Dates: start: 20140402, end: 20140402
  2. ALBENDAZOLE [Suspect]
     Dosage: 1 DF, ONCE
     Route: 048
     Dates: start: 20140402, end: 20140402

REACTIONS (3)
  - Coma [Recovered/Resolved]
  - Asthenia [Recovered/Resolved]
  - Headache [Recovered/Resolved]
